FAERS Safety Report 7374847-6 (Version None)
Quarter: 2011Q1

REPORT INFORMATION
  Report Type: 
  Country: None (occurrence: None)
  Receive Date: 20110325
  Receipt Date: 20110318
  Transmission Date: 20110831
  Serious: Yes (Other)
  Sender: FDA-Public Use
  Company Number: US-JNJFOC-20110308184

PATIENT
  Sex: Male

DRUGS (4)
  1. LEVAQUIN [Suspect]
     Indication: PRODUCT USED FOR UNKNOWN INDICATION
     Route: 048
  2. LEVAQUIN [Suspect]
     Indication: PROPHYLAXIS
     Route: 042
  3. LEVAQUIN [Suspect]
     Indication: INFECTION PROPHYLAXIS
     Route: 042
  4. LEVAQUIN [Suspect]
     Route: 048

REACTIONS (1)
  - INCISION SITE BLISTER [None]
